FAERS Safety Report 12648617 (Version 4)
Quarter: 2018Q3

REPORT INFORMATION
  Report Type: Spontaneous
  Country: FR (occurrence: FR)
  Receive Date: 20160812
  Receipt Date: 20180828
  Transmission Date: 20181010
  Serious: Yes (Death, Life-Threatening, Hospitalization, Other)
  Sender: FDA-Public Use
  Company Number: PHHY2016FR108991

PATIENT
  Age: 61 Year
  Sex: Female
  Weight: 40 kg

DRUGS (7)
  1. PROGRAF [Suspect]
     Active Substance: TACROLIMUS\TACROLIMUS ANHYDROUS
     Indication: LIVER TRANSPLANT
     Dosage: 5 MG, QD
     Route: 048
     Dates: start: 20130529
  2. PROGRAF [Suspect]
     Active Substance: TACROLIMUS\TACROLIMUS ANHYDROUS
     Indication: LIVER TRANSPLANT
     Dosage: 10 MG, UNK
     Route: 048
     Dates: start: 20130529
  3. MYCOPHENOLATE MOFETIL. [Suspect]
     Active Substance: MYCOPHENOLATE MOFETIL
     Indication: LIVER TRANSPLANT
     Dosage: 2 G, QD
     Route: 065
     Dates: start: 20130529, end: 20130614
  4. FUROSEMIDE. [Suspect]
     Active Substance: FUROSEMIDE
     Indication: DIURETIC THERAPY
     Route: 041
  5. SOLU?MEDROL [Suspect]
     Active Substance: METHYLPREDNISOLONE SODIUM SUCCINATE
     Indication: PROPHYLAXIS AGAINST TRANSPLANT REJECTION
     Dosage: 20 MG, UNK
     Route: 041
     Dates: start: 20130529
  6. PREDNISONE. [Suspect]
     Active Substance: PREDNISONE
     Indication: LIVER TRANSPLANT
     Dosage: 20 MG, QD
     Route: 048
     Dates: start: 20130529
  7. PROGRAF [Suspect]
     Active Substance: TACROLIMUS\TACROLIMUS ANHYDROUS
     Indication: IMMUNOSUPPRESSANT DRUG THERAPY

REACTIONS (20)
  - Systemic inflammatory response syndrome [Fatal]
  - Lung disorder [Fatal]
  - Cardiorenal syndrome [Unknown]
  - Renal impairment [Unknown]
  - Multiple organ dysfunction syndrome [Fatal]
  - Renal failure [Fatal]
  - Hypovolaemia [Unknown]
  - Cytomegalovirus infection [Fatal]
  - Pulmonary oedema [Fatal]
  - Toxoplasmosis [Fatal]
  - Respiratory failure [Fatal]
  - Hypoxia [Fatal]
  - Coagulopathy [Fatal]
  - Hypercapnia [Fatal]
  - Circulatory collapse [Fatal]
  - Respiratory acidosis [Fatal]
  - Acute respiratory distress syndrome [Fatal]
  - Metabolic disorder [Fatal]
  - Inflammation [Fatal]
  - Aspergillus infection [Fatal]

NARRATIVE: CASE EVENT DATE: 201306
